FAERS Safety Report 4951136-8 (Version None)
Quarter: 2006Q1

REPORT INFORMATION
  Report Type: 
  Country: None (occurrence: None)
  Receive Date: 20060130
  Receipt Date: 20041210
  Transmission Date: 20060701
  Serious: Yes (Other)
  Sender: FDA-Public Use
  Company Number: 140876USA

PATIENT
  Age: 51 Year
  Sex: Female

DRUGS (10)
  1. COPAXONE [Suspect]
     Indication: MULTIPLE SCLEROSIS
     Dosage: 20 MILLIGRAM QD SUBCUTANEOUS
     Route: 058
     Dates: start: 19990806
  2. SOLU-MEDROL [Suspect]
  3. SYNTHROID [Concomitant]
  4. ACYCLOVIR [Concomitant]
  5. NEURONTIN [Concomitant]
  6. BACLOFEN [Concomitant]
  7. MIRALAX [Concomitant]
  8. CLIMERA PRO (ESTROGEN PATCH) [Concomitant]
  9. MULTIVITAMIN [Concomitant]
  10. FOLIC ACID [Concomitant]

REACTIONS (4)
  - ANAPHYLACTOID REACTION [None]
  - DRUG INEFFECTIVE [None]
  - INJECTION SITE REACTION [None]
  - MULTIPLE SCLEROSIS RELAPSE [None]
